FAERS Safety Report 24705909 (Version 1)
Quarter: 2024Q4

REPORT INFORMATION
  Report Type: Other
  Country: ES (occurrence: ES)
  Receive Date: 20241206
  Receipt Date: 20241206
  Transmission Date: 20250115
  Serious: Yes (Life-Threatening, Hospitalization)
  Sender: B BRAUN
  Company Number: ES-B.Braun Medical Inc.-2166548

PATIENT
  Age: 5 Year
  Sex: Female

DRUGS (10)
  1. CEFEPIME HYDROCHLORIDE [Suspect]
     Active Substance: CEFEPIME HYDROCHLORIDE
     Indication: Evidence based treatment
  2. CEFEPIME HYDROCHLORIDE [Suspect]
     Active Substance: CEFEPIME HYDROCHLORIDE
     Indication: Abdominal pain
  3. CEFEPIME HYDROCHLORIDE [Suspect]
     Active Substance: CEFEPIME HYDROCHLORIDE
     Indication: Hypotension
  4. CEFEPIME HYDROCHLORIDE [Suspect]
     Active Substance: CEFEPIME HYDROCHLORIDE
     Indication: Tachycardia
  5. MEROPENEM [Suspect]
     Active Substance: MEROPENEM
  6. B amphotericin [Concomitant]
  7. MICAFUNGIN [Concomitant]
     Active Substance: MICAFUNGIN SODIUM
  8. CIPROFLOXACIN [Suspect]
     Active Substance: CIPROFLOXACIN
  9. LINEZOLID [Suspect]
     Active Substance: LINEZOLID
  10. AMIKACIN [Suspect]
     Active Substance: AMIKACIN

REACTIONS (2)
  - Pathogen resistance [Unknown]
  - Drug ineffective [Unknown]
